FAERS Safety Report 5227706-9 (Version None)
Quarter: 2007Q1

REPORT INFORMATION
  Report Type: 
  Country: None (occurrence: None)
  Receive Date: 20070202
  Receipt Date: 20061129
  Transmission Date: 20070707
  Serious: No
  Sender: FDA-Public Use
  Company Number: US-PFIZER INC-2006109037

PATIENT
  Sex: Male

DRUGS (3)
  1. NORVASC [Suspect]
  2. ATENOLOL [Suspect]
     Route: 048
  3. DEMAREX [Suspect]

REACTIONS (1)
  - NO ADVERSE EFFECT [None]
